FAERS Safety Report 7465813-0 (Version None)
Quarter: 2011Q2

REPORT INFORMATION
  Report Type: 
  Country: None (occurrence: None)
  Receive Date: 20110509
  Receipt Date: 20100402
  Transmission Date: 20111010
  Serious: No
  Sender: FDA-Public Use
  Company Number: US-ALEXION-A201000357

PATIENT
  Sex: Male

DRUGS (6)
  1. SOLIRIS [Suspect]
     Indication: PAROXYSMAL NOCTURNAL HAEMOGLOBINURIA
     Dosage: 600 MG, UNK
     Route: 042
     Dates: start: 20071101
  2. OXYCODONE HCL [Suspect]
     Indication: HEADACHE
     Dosage: UNK
     Route: 048
     Dates: start: 20100503
  3. PREDNISONE [Concomitant]
     Dosage: UNK
     Route: 048
  4. MULTI-VITAMINS [Concomitant]
     Dosage: UNK
     Route: 048
  5. SOLIRIS [Suspect]
     Dosage: 900 MG, Q2W
     Route: 042
     Dates: start: 20070101
  6. FOLIC ACID [Concomitant]
     Dosage: UNK
     Route: 048

REACTIONS (5)
  - VOMITING [None]
  - DEPRESSED MOOD [None]
  - HEADACHE [None]
  - ASTHENIA [None]
  - JOINT SWELLING [None]
